FAERS Safety Report 24647690 (Version 3)
Quarter: 2025Q3

REPORT INFORMATION
  Report Type: Spontaneous
  Country: US (occurrence: US)
  Receive Date: 20241121
  Receipt Date: 20250929
  Transmission Date: 20251020
  Serious: No
  Sender: PFIZER
  Company Number: US-PFIZER INC-PV202400149383

PATIENT
  Age: 60 Year
  Sex: Female

DRUGS (1)
  1. NURTEC ODT [Suspect]
     Active Substance: RIMEGEPANT SULFATE
     Dosage: DISSOLVE 1 TAB UNDER TONGUE EVERY OTHER DAY
     Route: 048

REACTIONS (1)
  - Therapeutic product effect delayed [Unknown]
